FAERS Safety Report 8199839-9 (Version None)
Quarter: 2012Q1

REPORT INFORMATION
  Report Type: 
  Country: None (occurrence: None)
  Receive Date: 20120312
  Receipt Date: 20120301
  Transmission Date: 20120608
  Serious: No
  Sender: FDA-Public Use
  Company Number: US-BIOGENIDEC-2011BI025936

PATIENT
  Sex: Male

DRUGS (1)
  1. TYSABRI [Suspect]
     Indication: MULTIPLE SCLEROSIS
     Route: 042
     Dates: start: 20100805, end: 20110330

REACTIONS (6)
  - URINARY TRACT INFECTION [None]
  - MUSCULAR WEAKNESS [None]
  - DIARRHOEA [None]
  - CONSTIPATION [None]
  - DRUG INEFFECTIVE [None]
  - URINARY RETENTION [None]
